FAERS Safety Report 4336275-7 (Version None)
Quarter: 2004Q2

REPORT INFORMATION
  Report Type: 
  Country: None (occurrence: None)
  Receive Date: 20040407
  Receipt Date: 20040322
  Transmission Date: 20050107
  Serious: Yes (Hospitalization)
  Sender: FDA-Public Use
  Company Number: USA030330400

PATIENT
  Age: 85 Year
  Sex: Female
  Weight: 68 kg

DRUGS (11)
  1. FORTEO [Suspect]
     Indication: OSTEOPOROSIS
     Dosage: 20 UG EVERY OTHER DAY
     Dates: start: 20030214
  2. DETROL LA (TOLTERODINE L-TARTRATE) [Concomitant]
  3. LOTREL [Concomitant]
  4. VITAMIN E [Concomitant]
  5. CALCIUM WITH VITAMIN D [Concomitant]
  6. ASPIRIN [Concomitant]
  7. PEPCID [Concomitant]
  8. LACTINEX [Concomitant]
  9. HYCOTUSS [Concomitant]
  10. TRAMADOL HCL [Concomitant]
  11. CALCIUM CARBONATE [Concomitant]

REACTIONS (10)
  - BLOOD PRESSURE INCREASED [None]
  - FALL [None]
  - HAEMORRHAGE [None]
  - INJECTION SITE DISCOLOURATION [None]
  - LOOSE STOOLS [None]
  - NASOPHARYNGITIS [None]
  - PHARMACEUTICAL PRODUCT COMPLAINT [None]
  - PNEUMONIA [None]
  - PRURITUS [None]
  - UPPER RESPIRATORY TRACT INFECTION [None]
